FAERS Safety Report 25705763 (Version 4)
Quarter: 2025Q4

REPORT INFORMATION
  Report Type: Spontaneous
  Country: US (occurrence: US)
  Receive Date: 20250820
  Receipt Date: 20251014
  Transmission Date: 20260118
  Serious: No
  Sender: PFIZER
  Company Number: US-PFIZER INC-PV202500099125

PATIENT
  Age: 52 Year
  Sex: Male
  Weight: 103.49 kg

DRUGS (3)
  1. BICILLIN L-A [Suspect]
     Active Substance: PENICILLIN G BENZATHINE
     Indication: Pharyngitis streptococcal
     Dosage: 1.2 MILLION/2 ML, SINGLE
     Route: 030
     Dates: start: 20241223, end: 20241223
  2. ATORVASTATIN [Concomitant]
     Active Substance: ATORVASTATIN
     Indication: Hyperlipidaemia
     Dosage: 20 MG, DAILY
  3. CYCLOBENZAPRINE [Concomitant]
     Active Substance: CYCLOBENZAPRINE
     Indication: Sciatica
     Dosage: 10 MG, DAILY, AS NEEDED

REACTIONS (1)
  - Recalled product administered [Unknown]

NARRATIVE: CASE EVENT DATE: 20241223
